FAERS Safety Report 4772942-9 (Version None)
Quarter: 2005Q3

REPORT INFORMATION
  Report Type: 
  Country: None (occurrence: None)
  Receive Date: 20050916
  Receipt Date: 20050908
  Transmission Date: 20060218
  Serious: Yes (Disabling, Other)
  Sender: FDA-Public Use
  Company Number: DE-2005-003038

PATIENT
  Sex: Male

DRUGS (1)
  1. MAGNEVIST [Suspect]
     Indication: NUCLEAR MAGNETIC RESONANCE IMAGING
     Dosage: 1 DOSE

REACTIONS (4)
  - OPTIC NERVE DISORDER [None]
  - PERIPHERAL OCCLUSIVE DISEASE [None]
  - STRESS [None]
  - VISUAL FIELD DEFECT [None]
